FAERS Safety Report 5515537-1 (Version None)
Quarter: 2007Q4

REPORT INFORMATION
  Report Type: 
  Country: None (occurrence: None)
  Receive Date: 20071113
  Receipt Date: 20070323
  Transmission Date: 20080405
  Serious: No
  Sender: FDA-Public Use
  Company Number: A0644352A

PATIENT
  Age: 81 Year
  Sex: Male

DRUGS (3)
  1. COREG [Suspect]
     Indication: HYPERTENSION
     Dosage: 6.25MG TWICE PER DAY
     Route: 048
     Dates: start: 20060101
  2. DIGOXIN [Concomitant]
  3. FUROSEMIDE [Concomitant]

REACTIONS (1)
  - JOINT SWELLING [None]
